FAERS Safety Report 24656752 (Version 1)
Quarter: 2024Q4

REPORT INFORMATION
  Report Type: Spontaneous
  Country: NL (occurrence: NL)
  Receive Date: 20241125
  Receipt Date: 20241125
  Transmission Date: 20250114
  Serious: Yes (Hospitalization, Disabling)
  Sender: NOVO NORDISK
  Company Number: None

PATIENT
  Age: 64 Year
  Sex: Female
  Weight: 103 kg

DRUGS (1)
  1. OZEMPIC [Suspect]
     Active Substance: SEMAGLUTIDE
     Indication: Type 2 diabetes mellitus
     Dosage: 1X/WEEK 1 DOSE
     Dates: start: 20240101, end: 20241030

REACTIONS (2)
  - Papilloedema [Not Recovered/Not Resolved]
  - Blindness unilateral [Not Recovered/Not Resolved]
